FAERS Safety Report 9744097 (Version 1)
Quarter: 2013Q4

REPORT INFORMATION
  Report Type: Spontaneous
  Country: RU (occurrence: RU)
  Receive Date: 20131210
  Receipt Date: 20131210
  Transmission Date: 20140711
  Serious: Yes (Other)
  Sender: FDA-Public Use
  Company Number: RU-VIIV HEALTHCARE LIMITED-B0951586A

PATIENT
  Age: 34 Year
  Sex: Male
  Weight: 91 kg

DRUGS (4)
  1. ZIAGEN [Suspect]
     Indication: HIV INFECTION
     Dosage: 600MG PER DAY
     Route: 048
     Dates: start: 20130904, end: 20131130
  2. KALETRA [Concomitant]
     Indication: HIV INFECTION
     Dosage: 1.2U PER DAY
     Route: 048
     Dates: start: 2008
  3. LAMIVUDINE-HIV [Concomitant]
     Indication: HIV INFECTION
     Dosage: .2U PER DAY
     Route: 048
     Dates: start: 2008, end: 2008
  4. ZIDOVUDINE [Concomitant]
     Indication: HIV INFECTION
     Dates: start: 2008

REACTIONS (4)
  - Asthenia [Recovering/Resolving]
  - General physical health deterioration [Recovering/Resolving]
  - Dyspnoea [Recovered/Resolved]
  - Rash [Recovered/Resolved]
